FAERS Safety Report 23888998 (Version 2)
Quarter: 2024Q2

REPORT INFORMATION
  Report Type: Spontaneous
  Country: US (occurrence: US)
  Receive Date: 20240523
  Receipt Date: 20240607
  Transmission Date: 20240716
  Serious: Yes (Other)
  Sender: FDA-Public Use
  Company Number: US-APELLIS-2024-APL-0000011

PATIENT

DRUGS (1)
  1. SYFOVRE [Suspect]
     Active Substance: PEGCETACOPLAN
     Indication: Dry age-related macular degeneration
     Dosage: THIS PATIENT RECEIVED SYFOVRE VIA INTRAVITREAL INJECTION IN THE LEFT EYE ONE TIME ON 02APR2024
     Route: 031
     Dates: start: 20240402, end: 20240402

REACTIONS (1)
  - Uveitis [Recovering/Resolving]
